FAERS Safety Report 15657274 (Version 1)
Quarter: 2018Q4

REPORT INFORMATION
  Report Type: Report from Study
  Country: FR (occurrence: FR)
  Receive Date: 20181126
  Receipt Date: 20181126
  Transmission Date: 20190205
  Serious: Yes (Life-Threatening, Hospitalization, Other)
  Sender: FDA-Public Use
  Company Number: FR-SAKK-2018SA158766AA

PATIENT
  Age: 18 Year
  Sex: Female
  Weight: 62 kg

DRUGS (25)
  1. PARACETAMOL [Concomitant]
     Active Substance: ACETAMINOPHEN
     Indication: NASOPHARYNGITIS
     Dosage: UNK
     Route: 065
     Dates: start: 20170529, end: 20170619
  2. SPECIAFOLDINE [Concomitant]
     Active Substance: FOLIC ACID
     Indication: PROPHYLAXIS
     Dosage: UNK
     Route: 065
     Dates: start: 20170227, end: 20170331
  3. ACUPAN [Concomitant]
     Active Substance: NEFOPAM HYDROCHLORIDE
     Indication: PROPHYLAXIS
     Dosage: UNK
     Route: 065
     Dates: start: 20170904, end: 20170906
  4. CEFAZOLINE [Concomitant]
     Active Substance: CEFAZOLIN SODIUM
     Indication: PROPHYLAXIS
     Dosage: UNK
     Dates: start: 20170904, end: 20170904
  5. LANTUS [Suspect]
     Active Substance: INSULIN GLARGINE
     Dosage: 34 IU, QD
     Route: 058
  6. DEXAMETHASONE. [Concomitant]
     Active Substance: DEXAMETHASONE
     Indication: PROPHYLAXIS
     Dosage: UNK
     Route: 065
     Dates: start: 20170904, end: 20170904
  7. LANTUS [Suspect]
     Active Substance: INSULIN GLARGINE
     Indication: TYPE 1 DIABETES MELLITUS
     Dosage: 24 IU, QD
     Route: 058
     Dates: start: 20090817
  8. KETOPROFENE [Concomitant]
     Active Substance: KETOPROFEN
     Indication: PROPHYLAXIS
     Dosage: UNK
     Dates: start: 20170904, end: 20170908
  9. ONDANSETRON [Concomitant]
     Active Substance: ONDANSETRON
     Indication: PROPHYLAXIS
     Dosage: UNK
     Route: 065
     Dates: start: 20170904, end: 20170904
  10. NOVORAPID [Suspect]
     Active Substance: INSULIN ASPART
     Dosage: 84 IU, QD
     Route: 058
  11. UVEDOSE [Concomitant]
     Active Substance: CHOLECALCIFEROL
     Indication: PROPHYLAXIS
     Dosage: UNK
     Route: 065
     Dates: start: 20170620, end: 20170620
  12. TARDYFERON [Concomitant]
     Active Substance: FERROUS SULFATE
     Indication: PROPHYLAXIS
     Dosage: UNK (80)
     Route: 065
     Dates: start: 20170619, end: 20170713
  13. DOLIPRANE [Concomitant]
     Active Substance: ACETAMINOPHEN
     Indication: PROPHYLAXIS
     Dosage: UNK
     Route: 065
     Dates: start: 20170904, end: 201709
  14. TARDYFERON [Concomitant]
     Active Substance: FERROUS SULFATE
     Indication: ANAEMIA
     Dosage: UNK
     Route: 065
     Dates: start: 20170907, end: 201710
  15. LYSOPAINE [Concomitant]
     Active Substance: CETYLPYRIDINIUM CHLORIDE\LYSOZYME HYDROCHLORIDE
     Indication: NASOPHARYNGITIS
     Dosage: UNK
     Route: 065
     Dates: start: 20170529, end: 20170619
  16. NOVORAPID [Suspect]
     Active Substance: INSULIN ASPART
     Indication: TYPE 1 DIABETES MELLITUS
     Dosage: 33 IU, QD
     Route: 058
     Dates: start: 20090817
  17. LACTATED RINGERS SOLUTION [Concomitant]
     Active Substance: CALCIUM CHLORIDE\POTASSIUM CHLORIDE\SODIUM CHLORIDE\SODIUM LACTATE
     Indication: PROPHYLAXIS
     Dosage: UNK
     Route: 065
     Dates: start: 20170903, end: 20170904
  18. LOVENOX [Concomitant]
     Active Substance: ENOXAPARIN SODIUM
     Indication: PROPHYLAXIS
     Dosage: UNK
     Route: 065
     Dates: start: 20170904, end: 20170914
  19. LEVOBUPIVACAINE [Concomitant]
     Active Substance: LEVOBUPIVACAINE
     Indication: EPIDURAL ANAESTHESIA
  20. SUFENTANIL [Concomitant]
     Active Substance: SUFENTANIL
     Indication: EPIDURAL ANAESTHESIA
     Dosage: UNK
     Dates: start: 20170903, end: 20170904
  21. ASPIRINE [Concomitant]
     Active Substance: ASPIRIN
     Indication: PROPHYLAXIS
     Dosage: UNK
     Route: 065
     Dates: start: 20170227, end: 20170831
  22. ECONAZOLE. [Concomitant]
     Active Substance: ECONAZOLE NITRATE
     Indication: VULVOVAGINAL MYCOTIC INFECTION
     Dosage: UNK
     Route: 065
     Dates: start: 20170713, end: 201707
  23. GLUCOSE [Concomitant]
     Active Substance: DEXTROSE
     Indication: PROPHYLAXIS
     Dosage: UNK
     Route: 065
     Dates: start: 20170903, end: 20170904
  24. LIDOCAINE ADRENALINE AGUETTANT [Concomitant]
     Active Substance: EPINEPHRINE\LIDOCAINE
     Indication: EPIDURAL ANAESTHESIA
     Dosage: UNK
     Dates: start: 20170903, end: 20170904
  25. MOPRAL [Concomitant]
     Active Substance: OMEPRAZOLE
     Indication: GASTROOESOPHAGEAL REFLUX DISEASE
     Dosage: UNK
     Route: 065
     Dates: start: 20170907, end: 20170907

REACTIONS (7)
  - Diabetic ketosis [Recovered/Resolved]
  - Postpartum haemorrhage [Recovered/Resolved]
  - Cervical dilatation [Recovered/Resolved]
  - Exposure during pregnancy [Unknown]
  - Condition aggravated [Not Recovered/Not Resolved]
  - Diabetic retinopathy [Not Recovered/Not Resolved]
  - Foetal heart rate disorder [Recovered/Resolved]

NARRATIVE: CASE EVENT DATE: 20161208
